FAERS Safety Report 14240550 (Version 3)
Quarter: 2017Q4

REPORT INFORMATION
  Report Type: Report from Study
  Country: JP (occurrence: JP)
  Receive Date: 20171130
  Receipt Date: 20171218
  Transmission Date: 20180321
  Serious: Yes (Hospitalization)
  Sender: FDA-Public Use
  Company Number: PHJP2017JP030127

PATIENT
  Age: 66 Year
  Sex: Female
  Weight: 60.9 kg

DRUGS (26)
  1. BONOTEO [Concomitant]
     Active Substance: MINODRONIC ACID
     Indication: OSTEOPOROSIS
     Dosage: 50 MG, 4W
     Route: 048
  2. ALESION [Concomitant]
     Active Substance: EPINASTINE HYDROCHLORIDE
     Indication: SEASONAL ALLERGY
     Dosage: PRN, ADEQUATE DOSE
     Route: 047
     Dates: start: 20150303
  3. TAPCOM [Concomitant]
     Active Substance: TAFLUPROST\TIMOLOL
     Indication: GLAUCOMA
     Dosage: PRN, ADEQUATE DOSE
     Route: 047
     Dates: start: 20150303
  4. BLINDED PLACEBO [Suspect]
     Active Substance: INVESTIGATIONAL PRODUCT
     Indication: NEUROENDOCRINE TUMOUR
     Dosage: CODE NOT BROKEN
     Route: 048
     Dates: start: 20130215, end: 20150702
  5. SODIUM HYALURONATE [Concomitant]
     Active Substance: HYALURONATE SODIUM
     Indication: OSTEOARTHRITIS
     Dosage: PRN, ADEQUATE DOSE
     Route: 014
  6. DERMOVATE [Concomitant]
     Active Substance: CLOBETASOL
     Indication: PARONYCHIA
     Dosage: PRN, ADEQUATE DOSE
     Route: 061
     Dates: start: 20170803, end: 20171115
  7. LOXONIN [Concomitant]
     Active Substance: LOXOPROFEN SODIUM
     Indication: HEADACHE
     Dosage: 60 MG, QD
     Route: 048
     Dates: start: 20171117
  8. OLMETEC [Concomitant]
     Active Substance: OLMESARTAN MEDOXOMIL
     Indication: HYPERTENSION
     Dosage: 20 MG, QD
     Route: 048
  9. RILYFTER [Concomitant]
     Active Substance: CLOTIAZEPAM
     Indication: PALPITATIONS
     Dosage: 5 MG, PRN
     Route: 048
     Dates: start: 201210
  10. URSODEOXYCHOLIC ACID [Concomitant]
     Active Substance: URSODIOL
     Indication: HEPATIC FUNCTION ABNORMAL
     Dosage: 100 MG, TID
     Route: 048
     Dates: start: 20130510
  11. CALONAL [Concomitant]
     Active Substance: ACETAMINOPHEN
     Indication: ARTHRALGIA
     Dosage: 500 MG, PRN
     Route: 048
     Dates: start: 20140621
  12. CADUET [Concomitant]
     Active Substance: AMLODIPINE BESYLATE\ATORVASTATIN CALCIUM
     Indication: HYPERTENSION
     Dosage: 1 DF, QD
     Route: 048
     Dates: start: 20170201
  13. MUCOSTA [Concomitant]
     Active Substance: REBAMIPIDE
     Indication: DRY EYE
     Dosage: PRN, ADEQUATE DOSE
     Route: 047
  14. EBRANTIL [Concomitant]
     Active Substance: URAPIDIL
     Indication: NEUROGENIC BLADDER
     Dosage: 15 MG, QD
     Route: 048
     Dates: start: 20150930
  15. AFINITOR [Suspect]
     Active Substance: EVEROLIMUS
     Indication: NEUROENDOCRINE TUMOUR
     Dosage: CODE NOT BROKEN
     Route: 048
     Dates: start: 20130215, end: 20150702
  16. EDIROL [Concomitant]
     Active Substance: ELDECALCITOL
     Indication: OSTEOPOROSIS
     Dosage: 0.75 UG, QD
     Route: 048
  17. LASIX [Concomitant]
     Active Substance: FUROSEMIDE
     Indication: OEDEMA PERIPHERAL
     Dosage: 20 MG, PRN
     Route: 048
     Dates: start: 20150714
  18. LANSOPRAZOLE. [Concomitant]
     Active Substance: LANSOPRAZOLE
     Indication: GASTROOESOPHAGEAL REFLUX DISEASE
     Dosage: 15 MG, QD
     Route: 048
     Dates: start: 20170509
  19. YAKUBAN [Concomitant]
     Active Substance: FLURBIPROFEN
     Indication: INTERVERTEBRAL DISC PROTRUSION
     Dosage: PRN, ADEQUATE DOSE
     Route: 062
  20. TAMBOCOR [Concomitant]
     Active Substance: FLECAINIDE ACETATE
     Indication: PALPITATIONS
     Dosage: 100 MG, PRN
     Route: 048
     Dates: start: 20130724
  21. RAD001C [Suspect]
     Active Substance: EVEROLIMUS
     Dosage: 5 MG, QD
     Route: 065
     Dates: start: 20171020, end: 20171116
  22. SUNRYTHM [Concomitant]
     Active Substance: PILSICAINIDE HYDROCHLORIDE
     Indication: PALPITATIONS
     Dosage: 50 MG, PRN
     Route: 048
     Dates: start: 201210
  23. BLINDED NO TREATMENT RECEIVED [Suspect]
     Active Substance: INVESTIGATIONAL PRODUCT
     Indication: NEUROENDOCRINE TUMOUR
     Dosage: CODE NOT BROKEN
     Route: 048
     Dates: start: 20130215, end: 20150702
  24. RAD001C [Suspect]
     Active Substance: EVEROLIMUS
     Indication: NEUROENDOCRINE TUMOUR
     Dosage: 5 MG, QD
     Route: 065
     Dates: start: 20150703, end: 20170924
  25. CADUET [Concomitant]
     Active Substance: AMLODIPINE BESYLATE\ATORVASTATIN CALCIUM
     Indication: HYPERCHOLESTEROLAEMIA
  26. DEXALTIN [Concomitant]
     Active Substance: DEXAMETHASONE
     Indication: STOMATITIS
     Dosage: PRN, ADEQUATE DOSE
     Route: 061
     Dates: start: 20140725

REACTIONS (2)
  - Pulmonary alveolar haemorrhage [Recovering/Resolving]
  - Pneumocystis jirovecii pneumonia [Recovering/Resolving]

NARRATIVE: CASE EVENT DATE: 20170922
